FAERS Safety Report 7978327-6 (Version None)
Quarter: 2011Q4

REPORT INFORMATION
  Report Type: 
  Country: None (occurrence: None)
  Receive Date: 20111206
  Receipt Date: 20111128
  Transmission Date: 20120403
  Serious: Yes (Hospitalization)
  Sender: FDA-Public Use
  Company Number: 2011SP055515

PATIENT
  Age: 54 Year
  Sex: Female

DRUGS (3)
  1. LORAZEPAM [Suspect]
     Indication: DEPRESSION
     Dosage: 3 MG;QD
     Dates: start: 20110501
  2. TERCIAN (CYAMEMAZINE) [Suspect]
     Indication: ANXIETY
     Dosage: 75 MG;QD;PO
     Route: 048
     Dates: start: 20090401
  3. MIRTAZAPINE [Suspect]
     Indication: DEPRESSION
     Dosage: 15 MG;TID;PO
     Route: 048
     Dates: start: 20110501

REACTIONS (1)
  - JUGULAR VEIN THROMBOSIS [None]
